FAERS Safety Report 17913765 (Version 3)
Quarter: 2020Q3

REPORT INFORMATION
  Report Type: Report from Study
  Country: US (occurrence: US)
  Receive Date: 20200618
  Receipt Date: 20200907
  Transmission Date: 20201103
  Serious: Yes (Other)
  Sender: FDA-Public Use
  Company Number: US-GLAXOSMITHKLINE-US2020AMR063435

PATIENT
  Sex: Female

DRUGS (4)
  1. NIRAPARIB [Suspect]
     Active Substance: NIRAPARIB
     Dosage: 200 MG, QD
     Route: 065
     Dates: start: 20200406, end: 20200422
  2. NIRAPARIB [Suspect]
     Active Substance: NIRAPARIB
     Indication: OVARIAN CANCER
     Dosage: 200 MG, DAILY
     Route: 065
     Dates: start: 20200404
  3. NIRAPARIB [Suspect]
     Active Substance: NIRAPARIB
     Dosage: 1 DF, QD
     Route: 065
  4. NIRAPARIB [Suspect]
     Active Substance: NIRAPARIB
     Dosage: 100 MG, QD
     Route: 065
     Dates: start: 20200507, end: 20200610

REACTIONS (15)
  - Ageusia [Unknown]
  - Nasal congestion [Unknown]
  - Pulmonary mass [Unknown]
  - Fatigue [Not Recovered/Not Resolved]
  - Rhinorrhoea [Unknown]
  - Epistaxis [Recovered/Resolved]
  - Off label use [Unknown]
  - Red blood cell count decreased [Unknown]
  - Renal impairment [Unknown]
  - Platelet count decreased [Recovered/Resolved]
  - Decreased appetite [Recovering/Resolving]
  - Weight decreased [Unknown]
  - Carbohydrate antigen 125 increased [Recovering/Resolving]
  - Constipation [Recovered/Resolved]
  - Renal disorder [Unknown]
